FAERS Safety Report 8056720-3 (Version None)
Quarter: 2012Q1

REPORT INFORMATION
  Report Type: 
  Country: None (occurrence: None)
  Receive Date: 20120119
  Receipt Date: 20120104
  Transmission Date: 20120608
  Serious: Yes (Hospitalization, Other)
  Sender: FDA-Public Use
  Company Number: US-ENDO PHARMACEUTICALS INC.-OPER20120003

PATIENT
  Age: 22 Year
  Sex: Female

DRUGS (1)
  1. OPANA ER [Suspect]
     Indication: DRUG ABUSE
     Route: 048

REACTIONS (5)
  - ABORTION SPONTANEOUS [None]
  - CARDIAC DISORDER [None]
  - DRUG DIVERSION [None]
  - DRUG ABUSE [None]
  - MATERNAL EXPOSURE DURING PREGNANCY [None]
